FAERS Safety Report 4620142-5 (Version None)
Quarter: 2005Q1

REPORT INFORMATION
  Report Type: 
  Country: None (occurrence: None)
  Receive Date: 20050323
  Receipt Date: 20050323
  Transmission Date: 20050727
  Serious: Yes (Death)
  Sender: FDA-Public Use
  Company Number: None

PATIENT
  Sex: Male
  Weight: 81.1939 kg

DRUGS (9)
  1. IRESSA [Suspect]
     Indication: PANCREATIC CARCINOMA
     Dosage: 250 MG  DAILY ORAL
     Route: 048
     Dates: start: 20041113, end: 20050128
  2. PACLITAXEL [Suspect]
     Indication: PANCREATIC CARCINOMA
     Dosage: 40 MG/M2/WEEKLY ; 85 MG WEEKLY X 6 WKS INTRAVENOUS
     Route: 042
     Dates: start: 20041122, end: 20041229
  3. ENSURE PLUS [Concomitant]
  4. ATENOLOL [Concomitant]
  5. LORAZEPAM [Concomitant]
  6. MULTI-VITAMIN [Concomitant]
  7. FE SUPPLEMENT [Concomitant]
  8. OMEPRAZOLE [Concomitant]
  9. MYLANTA [Concomitant]

REACTIONS (5)
  - ABDOMINAL PAIN [None]
  - COAGULOPATHY [None]
  - DISEASE PROGRESSION [None]
  - DUODENAL ULCER [None]
  - RESPIRATORY DISTRESS [None]
